FAERS Safety Report 6212693-7 (Version None)
Quarter: 2009Q2

REPORT INFORMATION
  Report Type: 
  Country: None (occurrence: None)
  Receive Date: 20090603
  Receipt Date: 20090602
  Transmission Date: 20091009
  Serious: Yes (Other)
  Sender: FDA-Public Use
  Company Number: EG-ROCHE-635640

PATIENT
  Sex: Male

DRUGS (4)
  1. PEGASYS [Suspect]
     Route: 065
     Dates: start: 20090120, end: 20090512
  2. RIBAVIRIN [Suspect]
     Route: 065
     Dates: start: 20090120, end: 20090512
  3. PHENYTOIN [Concomitant]
     Indication: EPILEPSY
  4. PHENYTOIN [Concomitant]

REACTIONS (1)
  - EPILEPSY [None]
